FAERS Safety Report 4950134-8 (Version None)
Quarter: 2006Q1

REPORT INFORMATION
  Report Type: 
  Country: None (occurrence: None)
  Receive Date: 20060316
  Receipt Date: 20060302
  Transmission Date: 20060701
  Serious: Yes (Life-Threatening, Hospitalization, Disabling)
  Sender: FDA-Public Use
  Company Number: JP-2005-026268

PATIENT
  Age: 19 Year
  Sex: Female
  Weight: 70 kg

DRUGS (1)
  1. BETAFERON(INTEREFERON BETA - 1B) INJECTION, 250UG [Suspect]
     Indication: MULTIPLE SCLEROSIS
     Dosage: 8 MIU SUBCUTANEOUS
     Route: 058
     Dates: start: 20051130, end: 20051201

REACTIONS (4)
  - EPILEPSY [None]
  - MULTIPLE SCLEROSIS RELAPSE [None]
  - RESPIRATORY ARREST [None]
  - REVERSIBLE POSTERIOR LEUKOENCEPHALOPATHY SYNDROME [None]
